FAERS Safety Report 16901311 (Version 1)
Quarter: 2019Q4

REPORT INFORMATION
  Report Type: Spontaneous
  Country: US (occurrence: US)
  Receive Date: 20191009
  Receipt Date: 20191009
  Transmission Date: 20200122
  Serious: No
  Sender: FDA-Public Use
  Company Number: US-009507513-1909USA006519

PATIENT
  Age: 65 Year
  Sex: Female

DRUGS (1)
  1. REMERON [Suspect]
     Active Substance: MIRTAZAPINE
     Dosage: STRENGTH: 15 (UNIT NOT PROVIDED)
     Route: 048
     Dates: end: 20190812

REACTIONS (1)
  - Persistent genital arousal disorder [Not Recovered/Not Resolved]
